FAERS Safety Report 9182148 (Version 1)
Quarter: 2012Q4

REPORT INFORMATION
  Report Type: 
  Country: JP (occurrence: JP)
  Receive Date: 20121030
  Receipt Date: 20121030
  Transmission Date: 20130627
  Serious: Yes (Hospitalization)
  Sender: FDA-Public Use
  Company Number: JP-AMGEN-JPNSP2012068532

PATIENT
  Age: 86 Year
  Sex: Female

DRUGS (4)
  1. ARANESP [Suspect]
     Indication: NEPHROGENIC ANAEMIA
     Dosage: 30 mug, qd
     Route: 058
     Dates: start: 20120721, end: 20120721
  2. ARANESP [Suspect]
     Dosage: 60 mug, qd
     Route: 058
     Dates: start: 20120731, end: 20120731
  3. ARANESP [Suspect]
     Dosage: 60 mug, qd
     Route: 058
     Dates: start: 20120814, end: 20120814
  4. ARANESP [Suspect]
     Dosage: 60 mug, qd
     Route: 058
     Dates: start: 20120823, end: 20120823

REACTIONS (1)
  - Generalised erythema [Recovering/Resolving]
